FAERS Safety Report 14961964 (Version 2)
Quarter: 2018Q2

REPORT INFORMATION
  Report Type: Spontaneous
  Country: US (occurrence: US)
  Receive Date: 20180601
  Receipt Date: 20180613
  Transmission Date: 20180711
  Serious: No
  Sender: FDA-Public Use
  Company Number: US-BEH-2018091114

PATIENT
  Sex: Female
  Weight: 113.38 kg

DRUGS (17)
  1. PRIVIGEN [Interacting]
     Active Substance: HUMAN IMMUNOGLOBULIN G
     Dosage: 50 G, AS DIRECTED
     Route: 042
     Dates: start: 20170524
  2. DEXTROSE. [Concomitant]
     Active Substance: DEXTROSE
     Route: 065
  3. DIPHENHYDRAMINE. [Concomitant]
     Active Substance: DIPHENHYDRAMINE
     Route: 065
  4. EPINEPHRINE. [Concomitant]
     Active Substance: EPINEPHRINE
     Route: 065
  5. PRIVIGEN [Suspect]
     Active Substance: HUMAN IMMUNOGLOBULIN G
     Indication: MYASTHENIA GRAVIS
     Dosage: 50 G, TOT
     Route: 042
  6. PROAIR HFA [Concomitant]
     Active Substance: ALBUTEROL SULFATE
     Route: 065
  7. PYRIDOSTIGMINE [Concomitant]
     Active Substance: PYRIDOSTIGMINE
     Route: 065
  8. VITAMIN D3 [Concomitant]
     Active Substance: CHOLECALCIFEROL
     Route: 065
  9. ACETAMINOPHEN. [Concomitant]
     Active Substance: ACETAMINOPHEN
     Route: 065
  10. VITAMIN B12 [Concomitant]
     Active Substance: CYANOCOBALAMIN
     Route: 065
  11. RANITIDINE. [Concomitant]
     Active Substance: RANITIDINE
     Route: 065
  12. PRENATAL                           /00231801/ [Concomitant]
     Active Substance: VITAMINS
     Route: 065
  13. HEPARIN [Concomitant]
     Active Substance: HEPARIN SODIUM
     Route: 065
  14. SODIUM CHLORIDE. [Concomitant]
     Active Substance: SODIUM CHLORIDE
     Route: 065
  15. SODIUM BICARBONATE. [Concomitant]
     Active Substance: SODIUM BICARBONATE
     Route: 065
  16. SOLIRIS [Interacting]
     Active Substance: ECULIZUMAB
     Indication: PRODUCT USED FOR UNKNOWN INDICATION
     Route: 065
  17. OMEPRAZOLE. [Concomitant]
     Active Substance: OMEPRAZOLE
     Route: 065

REACTIONS (1)
  - Chest pain [Unknown]
